FAERS Safety Report 9722175 (Version 1)
Quarter: 2013Q4

REPORT INFORMATION
  Report Type: Spontaneous
  Country: JP (occurrence: JP)
  Receive Date: 20131202
  Receipt Date: 20131202
  Transmission Date: 20140711
  Serious: Yes (Hospitalization, Other)
  Sender: FDA-Public Use
  Company Number: JP-ACCORD-020488

PATIENT
  Age: 59 Year
  Sex: Female

DRUGS (1)
  1. GEMCITABINE [Suspect]
     Indication: METASTASES TO BONE
     Dosage: 14 DAYS FOLLOWED BY A 7-DAY REST PERIOD
     Dates: start: 201103

REACTIONS (1)
  - Tumour lysis syndrome [Unknown]
